FAERS Safety Report 5566950-8 (Version None)
Quarter: 2007Q4

REPORT INFORMATION
  Report Type: 
  Country: None (occurrence: None)
  Receive Date: 20071219
  Receipt Date: 20070523
  Transmission Date: 20080405
  Serious: No
  Sender: FDA-Public Use
  Company Number: US-BRISTOL-MYERS SQUIBB COMPANY-13789953

PATIENT
  Sex: Female

DRUGS (3)
  1. PRAVACHOL [Suspect]
  2. LIPITOR [Suspect]
  3. ZOCOR [Suspect]

REACTIONS (1)
  - PAIN IN EXTREMITY [None]
